FAERS Safety Report 9710094 (Version 2)
Quarter: 2013Q4

REPORT INFORMATION
  Report Type: Spontaneous
  Country: IT (occurrence: IT)
  Receive Date: 20131126
  Receipt Date: 20131204
  Transmission Date: 20140711
  Serious: Yes (Other)
  Sender: FDA-Public Use
  Company Number: IT-RANBAXY-2013RR-75535

PATIENT
  Age: 24 Year
  Sex: Male

DRUGS (2)
  1. AMOXICILLIN/CLAVULANIC ACID [Suspect]
     Indication: ANTIBIOTIC PROPHYLAXIS
     Dosage: 2 DF/DAY
     Route: 048
     Dates: start: 20131021, end: 20131022
  2. IBUPROFEN [Suspect]
     Indication: PAIN
     Dosage: 1 DF/DAY
     Route: 048
     Dates: start: 20131021, end: 20131022

REACTIONS (3)
  - Dysphonia [Recovered/Resolved]
  - Erythema [Recovered/Resolved]
  - Pharyngeal erythema [Recovered/Resolved]
